FAERS Safety Report 23849749 (Version 1)
Quarter: 2024Q2

REPORT INFORMATION
  Report Type: Spontaneous
  Country: US (occurrence: None)
  Receive Date: 20240512
  Receipt Date: 20240512
  Transmission Date: 20240716
  Serious: Yes (Other)
  Sender: FDA-Public Use
  Company Number: None

PATIENT
  Age: 70 Year
  Sex: Female
  Weight: 74.25 kg

DRUGS (7)
  1. CHLORAPREP SWABSTICK [Suspect]
     Active Substance: CHLORHEXIDINE GLUCONATE\ISOPROPYL ALCOHOL
     Indication: Antibiotic prophylaxis
     Dosage: OTHER QUANTITY : 10.5 ML;?OTHER FREQUENCY : OTHER;?
     Route: 061
     Dates: start: 20240430
  2. Raloxifine [Concomitant]
  3. Trazadone for sleep [Concomitant]
  4. PREDNISONE [Concomitant]
  5. CALCIUM\VITAMIN D [Concomitant]
     Active Substance: CALCIUM\VITAMIN D
  6. MAGNESIUM [Concomitant]
  7. NASACORT [Concomitant]

REACTIONS (4)
  - Swelling face [None]
  - Erythema [None]
  - Rash pruritic [None]
  - Urticaria [None]

NARRATIVE: CASE EVENT DATE: 20240430
